FAERS Safety Report 25175074 (Version 2)
Quarter: 2025Q2

REPORT INFORMATION
  Report Type: Spontaneous
  Country: US (occurrence: US)
  Receive Date: 20250408
  Receipt Date: 20250521
  Transmission Date: 20250717
  Serious: No
  Sender: MERCK SHARP & DOHME LLC
  Company Number: US-009507513-2266756

PATIENT
  Age: 82 Year
  Sex: Female
  Weight: 45.8 kg

DRUGS (21)
  1. SOTATERCEPT [Suspect]
     Active Substance: SOTATERCEPT
  2. SOTATERCEPT [Suspect]
     Active Substance: SOTATERCEPT
  3. SOTATERCEPT [Suspect]
     Active Substance: SOTATERCEPT
  4. SOTATERCEPT [Suspect]
     Active Substance: SOTATERCEPT
  5. REMODULIN [Suspect]
     Active Substance: TREPROSTINIL
     Indication: Pulmonary arterial hypertension
     Route: 058
     Dates: start: 20250218
  6. Bisoprolol; Hydrochlorothiazide [Concomitant]
  7. ELIQUIS [Concomitant]
     Active Substance: APIXABAN
  8. SODIUM CHLORIDE [Concomitant]
     Active Substance: SODIUM CHLORIDE
  9. RESTORIL [Concomitant]
     Active Substance: TEMAZEPAM
  10. JARDIANCE [Concomitant]
     Active Substance: EMPAGLIFLOZIN
  11. NEBIVOLOL [Concomitant]
     Active Substance: NEBIVOLOL
  12. SPIRONOLACTONE [Concomitant]
     Active Substance: SPIRONOLACTONE
  13. LUNESTA [Concomitant]
     Active Substance: ESZOPICLONE
  14. METOPROLOL TARTRATE [Concomitant]
     Active Substance: METOPROLOL TARTRATE
  15. TRAZODONE HCL [Concomitant]
     Active Substance: TRAZODONE HYDROCHLORIDE
  16. VALSARTAN [Concomitant]
     Active Substance: VALSARTAN
  17. AMBRISENTAN [Concomitant]
     Active Substance: AMBRISENTAN
  18. TADALAFIL [Concomitant]
     Active Substance: TADALAFIL
  19. ADEMPAS [Concomitant]
     Active Substance: RIOCIGUAT
  20. CLARITIN [Concomitant]
     Active Substance: LORATADINE
  21. PEPCID COMPLETE [Concomitant]
     Active Substance: CALCIUM CARBONATE\FAMOTIDINE\MAGNESIUM HYDROXIDE

REACTIONS (6)
  - Urinary tract infection [Recovered/Resolved]
  - Dizziness [Recovered/Resolved]
  - Micturition urgency [Recovered/Resolved]
  - Haemoglobin increased [Unknown]
  - Fatigue [Recovered/Resolved]
  - Dysuria [Recovered/Resolved]

NARRATIVE: CASE EVENT DATE: 20250101
